FAERS Safety Report 8449851-7 (Version None)
Quarter: 2012Q2

REPORT INFORMATION
  Report Type: 
  Country: None (occurrence: None)
  Receive Date: 20120614
  Receipt Date: 20120614
  Transmission Date: 20120825
  Serious: Yes (Life-Threatening, Hospitalization)
  Sender: FDA-Public Use
  Company Number: None

PATIENT
  Sex: Male
  Weight: 72.5755 kg

DRUGS (1)
  1. PEGLOTICASE 8 MG [Suspect]
     Indication: GOUTY TOPHUS
     Dosage: 8 MG, EVERY 14 DAYS, IV DRIP
     Route: 041
     Dates: start: 20120221, end: 20120607

REACTIONS (4)
  - LEFT VENTRICULAR FAILURE [None]
  - CARDIAC ARREST [None]
  - CORONARY ARTERY DISEASE [None]
  - CEREBROVASCULAR ACCIDENT [None]
